FAERS Safety Report 12767349 (Version 1)
Quarter: 2016Q3

REPORT INFORMATION
  Report Type: Spontaneous
  Country: US (occurrence: US)
  Receive Date: 20160921
  Receipt Date: 20160921
  Transmission Date: 20161109
  Serious: No
  Sender: FDA-Public Use
  Company Number: US-AMGEN-USASP2016124915

PATIENT
  Age: 68 Year
  Sex: Female

DRUGS (4)
  1. PROVENTIL [Concomitant]
     Active Substance: ALBUTEROL
     Dosage: UNK
  2. INH [Concomitant]
     Active Substance: ISONIAZID
     Dosage: UNK
  3. ENBREL [Suspect]
     Active Substance: ETANERCEPT
     Indication: PYODERMA GANGRENOSUM
     Dosage: 50 MG, QWK
     Route: 058
     Dates: start: 201512
  4. NABUMETONE. [Concomitant]
     Active Substance: NABUMETONE
     Dosage: UNK

REACTIONS (3)
  - Off label use [Unknown]
  - Throat irritation [Recovered/Resolved]
  - Productive cough [Recovered/Resolved]

NARRATIVE: CASE EVENT DATE: 201512
